FAERS Safety Report 7097268-2 (Version None)
Quarter: 2010Q4

REPORT INFORMATION
  Report Type: 
  Country: None (occurrence: None)
  Receive Date: 20101111
  Receipt Date: 20100429
  Transmission Date: 20110411
  Serious: No
  Sender: FDA-Public Use
  Company Number: US-KINGPHARMUSA00001-K201000524

PATIENT
  Sex: Female

DRUGS (3)
  1. LEVOXYL [Suspect]
     Dosage: UNK
  2. VITAMINS WITH MINERALS [Suspect]
  3. HERBAL PREPARATION [Suspect]

REACTIONS (1)
  - FATIGUE [None]
